FAERS Safety Report 21338178 (Version 1)
Quarter: 2022Q3

REPORT INFORMATION
  Report Type: Spontaneous
  Country: CN (occurrence: CN)
  Receive Date: 20220915
  Receipt Date: 20220915
  Transmission Date: 20221026
  Serious: Yes (Other)
  Sender: FDA-Public Use
  Company Number: None

PATIENT
  Age: 3 Year
  Sex: Female
  Weight: 11.3 kg

DRUGS (7)
  1. CYCLOPHOSPHAMIDE [Suspect]
     Active Substance: CYCLOPHOSPHAMIDE
     Indication: Acute lymphocytic leukaemia
     Dosage: 550 MG, QD (DILUTED WITH 0.9% SODIUM CHLORIDE INJECTION 250 ML, ONCE)
     Route: 041
     Dates: start: 20220809, end: 20220809
  2. SODIUM CHLORIDE [Suspect]
     Active Substance: SODIUM CHLORIDE
     Indication: Medication dilution
     Dosage: 90 MG, QD, DOSAGE FORM: INJECTION, (DILUTED WITH METHOTREXATE FOR INJECTION 10 MG + CYTARABINE HYDRO
     Route: 037
     Dates: start: 20220808, end: 20220808
  3. SODIUM CHLORIDE [Suspect]
     Active Substance: SODIUM CHLORIDE
     Dosage: 250 ML, QD, DOSAGE FORM: INJECTION (DILUTED WITH CYCLOPHOSPHAMIDE 550 MG, ONCE)
     Route: 041
     Dates: start: 20220809, end: 20220809
  4. DEXTROSE MONOHYDRATE [Suspect]
     Active Substance: DEXTROSE MONOHYDRATE
     Indication: Medication dilution
     Dosage: 50 ML, ONCE EVERY 2 DAYS, DOSAGE FORM: INJECTION, (DILUTED WITH CYTARABINE HYDROCHLORIDE FOR INJECTI
     Route: 041
     Dates: start: 20220808, end: 20220815
  5. METHOTREXATE [Suspect]
     Active Substance: METHOTREXATE
     Indication: Acute lymphocytic leukaemia
     Dosage: 10 MG, QD (DILUTED WITH SODIUM CHLORIDE INJECTION 90 MG + CYTARABINE HYDROCHLORIDE FOR INJECTION 35
     Route: 037
     Dates: start: 20220808, end: 20220808
  6. CYTARABINE HYDROCHLORIDE [Suspect]
     Active Substance: CYTARABINE HYDROCHLORIDE
     Indication: Acute lymphocytic leukaemia
     Dosage: 35 MG, QD (DILUTED WITH METHOTREXATE FOR INJECTION 10 MG + DILUTED WITH SODIUM CHLORIDE INJECTION 90
     Route: 037
     Dates: start: 20220808, end: 20220808
  7. CYTARABINE HYDROCHLORIDE [Suspect]
     Active Substance: CYTARABINE HYDROCHLORIDE
     Dosage: 27.5 MG, ONCE EVERY 2 DAYS (DILUTED WITH GLUCOSE INJECTION 50 ML)
     Route: 041
     Dates: start: 20220809, end: 20220815

REACTIONS (1)
  - Myelosuppression [Recovering/Resolving]

NARRATIVE: CASE EVENT DATE: 20220827
